FAERS Safety Report 18489011 (Version 2)
Quarter: 2020Q4

REPORT INFORMATION
  Report Type: Other
  Country: JP (occurrence: JP)
  Receive Date: 20201111
  Receipt Date: 20201113
  Transmission Date: 20210114
  Serious: Yes (Other)
  Sender: FDA-Public Use
  Company Number: JP-ROCHE-2711022

PATIENT
  Age: 64 Year
  Sex: Female
  Weight: 40 kg

DRUGS (2)
  1. TACROLIMUS MONOHYDRATE [Concomitant]
     Active Substance: TACROLIMUS
     Indication: PROPHYLAXIS AGAINST GRAFT VERSUS HOST DISEASE
     Dosage: DOSAGE IS UNCERTAIN.
     Route: 065
  2. CELLCEPT [Suspect]
     Active Substance: MYCOPHENOLATE MOFETIL\MYCOPHENOLATE MOFETIL HYDROCHLORIDE
     Indication: PROPHYLAXIS AGAINST GRAFT VERSUS HOST DISEASE
     Dosage: DOSAGE IS UNCERTAIN.
     Route: 048

REACTIONS (4)
  - Ileus paralytic [Unknown]
  - Adenoviral haemorrhagic cystitis [Recovering/Resolving]
  - Intentional product use issue [Unknown]
  - Off label use [Unknown]
